FAERS Safety Report 14112273 (Version 1)
Quarter: 2017Q4

REPORT INFORMATION
  Report Type: Spontaneous
  Country: US (occurrence: None)
  Receive Date: 20171020
  Receipt Date: 20171020
  Transmission Date: 20180321
  Serious: No
  Sender: FDA-Public Use
  Company Number: None

PATIENT

DRUGS (2)
  1. ADRENALIN [Suspect]
     Active Substance: EPINEPHRINE
     Dosage: INTRAMUSCULAR OR SQ MULTIPLE DOSE VIAL 30 ML
     Route: 030
  2. ADRENALIN [Suspect]
     Active Substance: EPINEPHRINE
     Dosage: INJECTABLE VASOCONSTRICTOR 30 ML

REACTIONS (2)
  - Product outer packaging issue [None]
  - Product label confusion [None]
